FAERS Safety Report 8583702-5 (Version None)
Quarter: 2012Q3

REPORT INFORMATION
  Report Type: 
  Country: None (occurrence: None)
  Receive Date: 20120809
  Receipt Date: 20120709
  Transmission Date: 20120928
  Serious: Yes (Life-Threatening, Other)
  Sender: FDA-Public Use
  Company Number: JP-009507513-2011SP045894

PATIENT

DRUGS (11)
  1. SUGAMMADEX SODIUM [Suspect]
     Indication: NEUROMUSCULAR BLOCKADE REVERSAL
     Dosage: 100 MG, ONCE
     Route: 042
     Dates: start: 20110927, end: 20110927
  2. SEVOFLURANE [Concomitant]
     Indication: MAINTENANCE OF ANAESTHESIA
     Dosage: 1 %, UNK
  3. FENTANYL [Concomitant]
     Indication: ANAESTHESIA PROCEDURE
     Dosage: 4 ML/HR
     Route: 008
  4. LIDOCAINE [Concomitant]
     Indication: ANAESTHESIA PROCEDURE
     Dosage: 4 ML, UNK
  5. ROCURONIUM BROMIDE [Concomitant]
     Indication: HYPOTONIA
     Dosage: 40 MG, UNK
     Route: 042
     Dates: start: 20110927, end: 20110927
  6. ENALAPRIL MALEATE [Concomitant]
  7. SERMION [Concomitant]
  8. CEFAZOLIN [Concomitant]
     Dosage: INDRP
  9. ACTOS [Concomitant]
  10. ROPIVACAINE HYDROCHLORIDE [Concomitant]
     Indication: ANAESTHESIA PROCEDURE
     Dosage: 2 MCG/ML
     Route: 008
  11. CRIXOFOL [Concomitant]
     Indication: INDUCTION OF ANAESTHESIA
     Dosage: 50 MG, UNK

REACTIONS (4)
  - ANAPHYLACTIC SHOCK [None]
  - BLOOD PRESSURE DECREASED [None]
  - ERYTHEMA [None]
  - URTICARIA [None]
